FAERS Safety Report 4277184-1 (Version None)
Quarter: 2004Q1

REPORT INFORMATION
  Report Type: 
  Country: None (occurrence: None)
  Receive Date: 20040120
  Receipt Date: 20040108
  Transmission Date: 20041129
  Serious: Yes (Hospitalization)
  Sender: FDA-Public Use
  Company Number: 22564

PATIENT
  Age: 72 Year
  Sex: Female

DRUGS (7)
  1. FLECAINIDE ACETATE [Suspect]
     Indication: ATRIAL FIBRILLATION
     Dosage: 100 MG (50 MG, 2 IN 1 DAY(S); ORAL
     Route: 048
     Dates: end: 20031120
  2. CELECTOL [Concomitant]
  3. PREVISCAN (FLUIDIONE) [Concomitant]
  4. OGAST (LANSOPRAZOLE) [Concomitant]
  5. LEXOMIL (BROMAZEPAM) [Concomitant]
  6. EUPHYTOSE (CARTEAGUS, PASSION FLOWER, PAULLINIA, KOLA, VALERIAN, BALLO [Concomitant]
  7. FERO-GRAD VITAMINE C 500 (FERROUS SULFATE, ASCORBIC ACID) [Concomitant]

REACTIONS (4)
  - INTERSTITIAL LUNG DISEASE [None]
  - LYMPHADENOPATHY MEDIASTINAL [None]
  - PULMONARY GRANULOMA [None]
  - PULMONARY SARCOIDOSIS [None]
